FAERS Safety Report 21074152 (Version 1)
Quarter: 2022Q3

REPORT INFORMATION
  Report Type: Spontaneous
  Country: FR (occurrence: FR)
  Receive Date: 20220713
  Receipt Date: 20220713
  Transmission Date: 20221026
  Serious: Yes (Death, Hospitalization, Other)
  Sender: FDA-Public Use
  Company Number: FR-SA-2019SA327225

PATIENT
  Age: 75 Year
  Sex: Female

DRUGS (2)
  1. DILTIAZEM HYDROCHLORIDE [Suspect]
     Active Substance: DILTIAZEM HYDROCHLORIDE
     Indication: Heart rate increased
     Route: 065
     Dates: start: 201807
  2. DILTIAZEM HYDROCHLORIDE [Suspect]
     Active Substance: DILTIAZEM HYDROCHLORIDE
     Indication: Pulmonary oedema

REACTIONS (5)
  - Death [Fatal]
  - Bronchitis [Fatal]
  - Renal failure [Fatal]
  - Arrhythmia [Fatal]
  - Contraindicated product administered [Fatal]

NARRATIVE: CASE EVENT DATE: 20180701
